FAERS Safety Report 9393342 (Version 2)
Quarter: 2013Q3

REPORT INFORMATION
  Report Type: Spontaneous
  Country: US (occurrence: US)
  Receive Date: 20130710
  Receipt Date: 20130807
  Transmission Date: 20140515
  Serious: Yes (Death, Other)
  Sender: FDA-Public Use
  Company Number: US-PFIZER INC-2013199325

PATIENT
  Age: 69 Year
  Sex: Female
  Weight: 77.55 kg

DRUGS (12)
  1. REVATIO [Suspect]
     Indication: PULMONARY HYPERTENSION
     Dosage: 20 MG, 3X/DAY
     Route: 048
     Dates: start: 20130129
  2. TRACLEER [Concomitant]
     Dosage: 125 MG, 2X/DAY (MOUTH 2 (TWO) TIMES DAILY)
     Route: 048
  3. NORVASC [Concomitant]
     Dosage: 10 MG, 1X/DAY (MOUTH DAILY)
     Route: 048
  4. LASIX [Concomitant]
     Dosage: 20 MG, 1X/DAY (BY MOUTH DAILY)
     Route: 048
  5. GLUCOTROL [Concomitant]
     Dosage: 5 MG, 2X/DAY (BY MOUTH 2 (TWO) TIMES DAILY BEFORE MEALS)
     Route: 048
  6. HELIUM/OXYGEN [Concomitant]
     Dosage: 6 L, 1X/DAY (6 L INTO THE LUNGS DAILY)
     Route: 055
  7. K-DUR [Concomitant]
     Dosage: 20 MEQ, 1X/DAY (TAKE 20 MEQ BY MOUTH NIGHTLY)
     Route: 048
  8. KLOR-CON [Concomitant]
     Dosage: 20 MEQ, 1X/DAY (TAKE 20 MEQ BY MOUTH NIGHTLY)
  9. THEOPHYLLINE [Concomitant]
     Dosage: 300 MG, UNK (TAKE 300 MG BY MOUTH EVERY 12 (TWELVE) HOURS)
     Route: 048
  10. ULTRAM [Concomitant]
     Dosage: 50 MG, (Q 4-6 HOURS PRN)
     Route: 048
  11. COUMADIN [Concomitant]
     Dosage: 10 MG, (TAKE BY MOUTH. TAKE AS DIRECTED)
     Route: 048
  12. WARFARIN [Concomitant]
     Dosage: UNK

REACTIONS (9)
  - Chronic obstructive pulmonary disease [Fatal]
  - Pulmonary hypertension [Unknown]
  - Cardiac failure chronic [Unknown]
  - Pickwickian syndrome [Unknown]
  - Cardiac disorder [Unknown]
  - Hypoxia [Unknown]
  - Fatigue [Unknown]
  - Dizziness [Unknown]
  - Musculoskeletal stiffness [Unknown]
